FAERS Safety Report 17525469 (Version 2)
Quarter: 2020Q1

REPORT INFORMATION
  Report Type: Report from Study
  Country: GB (occurrence: GB)
  Receive Date: 20200311
  Receipt Date: 20200328
  Transmission Date: 20200409
  Serious: Yes (Other)
  Sender: FDA-Public Use
  Company Number: NVSC2020GB066558

PATIENT
  Sex: Male

DRUGS (1)
  1. HYRIMOZ [Suspect]
     Active Substance: ADALIMUMAB-ADAZ
     Indication: CROHN^S DISEASE
     Dosage: 40 MG, QHS
     Route: 058
     Dates: start: 201906

REACTIONS (3)
  - Abdominal discomfort [Unknown]
  - Candida infection [Recovering/Resolving]
  - Gastrointestinal infection [Recovering/Resolving]
